FAERS Safety Report 13130439 (Version 1)
Quarter: 2017Q1

REPORT INFORMATION
  Report Type: Spontaneous
  Country: US (occurrence: US)
  Receive Date: 20170119
  Receipt Date: 20170119
  Transmission Date: 20170428
  Serious: No
  Sender: FDA-Public Use
  Company Number: US-B.I. PHARMACEUTICALS,INC./RIDGEFIELD-2017-BI-002437

PATIENT
  Age: 59 Year
  Sex: Female

DRUGS (1)
  1. STIOLTO RESPIMAT [Suspect]
     Active Substance: OLODATEROL HYDROCHLORIDE\TIOTROPIUM BROMIDE MONOHYDRATE
     Indication: BRONCHITIS
     Dosage: 2 SPRAYS ONE TIME EACH DAY;  FORM STRENGTH: 2.5 MCG; FORMULATION: INHALATION SPRAY? ADMINISTRATION C
     Route: 055
     Dates: start: 20161121, end: 20161221

REACTIONS (4)
  - Off label use [Recovered/Resolved]
  - Head injury [Unknown]
  - Pneumonia [Unknown]
  - Pyrexia [Unknown]

NARRATIVE: CASE EVENT DATE: 20161121
